FAERS Safety Report 4712438-3 (Version None)
Quarter: 2005Q3

REPORT INFORMATION
  Report Type: 
  Country: None (occurrence: None)
  Receive Date: 20050712
  Receipt Date: 20050428
  Transmission Date: 20060218
  Serious: Yes (Other)
  Sender: FDA-Public Use
  Company Number: GBWYE629028APR05

PATIENT
  Sex: Female
  Weight: 55 kg

DRUGS (4)
  1. ENBREL [Suspect]
     Indication: DRUG USE FOR UNKNOWN INDICATION
     Route: 058
     Dates: start: 20050106
  2. ENBREL [Suspect]
  3. ADALIMUMAB [Suspect]
  4. IBUPROFEN [Concomitant]
     Route: 065

REACTIONS (1)
  - PARAESTHESIA [None]
